FAERS Safety Report 25203881 (Version 1)
Quarter: 2025Q2

REPORT INFORMATION
  Report Type: Spontaneous
  Country: US (occurrence: None)
  Receive Date: 20250416
  Receipt Date: 20250416
  Transmission Date: 20250716
  Serious: Yes (Other)
  Sender: FDA-CTU
  Company Number: None

PATIENT
  Age: 54 Year
  Sex: Female
  Weight: 51.75 kg

DRUGS (3)
  1. CLENPIQ [Suspect]
     Active Substance: ANHYDROUS CITRIC ACID\MAGNESIUM OXIDE\SODIUM PICOSULFATE
     Indication: Bowel preparation
     Route: 048
     Dates: start: 20250415, end: 20250415
  2. VITAMIN B [Concomitant]
     Active Substance: VITAMIN B
  3. VITAMIN D [Concomitant]
     Active Substance: VITAMIN D NOS

REACTIONS (6)
  - Headache [None]
  - Abdominal pain [None]
  - Hypoaesthesia [None]
  - Electrolyte imbalance [None]
  - Retching [None]
  - Vomiting [None]

NARRATIVE: CASE EVENT DATE: 20250415
